FAERS Safety Report 15724091 (Version 2)
Quarter: 2018Q4

REPORT INFORMATION
  Report Type: Spontaneous
  Country: CN (occurrence: CN)
  Receive Date: 20181214
  Receipt Date: 20181220
  Transmission Date: 20190205
  Serious: Yes (Other)
  Sender: FDA-Public Use
  Company Number: CN-ASTRAZENECA-2018SF62225

PATIENT
  Age: 85 Year
  Sex: Female
  Weight: 45 kg

DRUGS (62)
  1. AMIODARONE [Suspect]
     Active Substance: AMIODARONE
     Indication: CARDIOVERSION
     Route: 048
  2. PIPERACILLIN SODIUM AND TAZOBACTUM SODIUM [Suspect]
     Active Substance: PIPERACILLIN SODIUM\TAZOBACTAM SODIUM
     Indication: RENAL IMPAIRMENT
     Route: 041
  3. PIPERACILLIN SODIUM AND TAZOBACTUM SODIUM [Suspect]
     Active Substance: PIPERACILLIN SODIUM\TAZOBACTAM SODIUM
     Indication: PRODUCTIVE COUGH
     Route: 041
  4. PIPERACILLIN SODIUM AND TAZOBACTUM SODIUM [Suspect]
     Active Substance: PIPERACILLIN SODIUM\TAZOBACTAM SODIUM
     Indication: INFECTION
     Route: 041
  5. ARGATROBAN. [Concomitant]
     Active Substance: ARGATROBAN
     Indication: ANTICOAGULANT THERAPY
     Route: 048
  6. PROBUCOL [Concomitant]
     Active Substance: PROBUCOL
     Indication: LIPIDS ABNORMAL
     Route: 048
  7. BUMETANIDE. [Concomitant]
     Active Substance: BUMETANIDE
     Indication: CARDIAC FUNCTION TEST ABNORMAL
     Route: 042
  8. NICERGOLINE [Concomitant]
     Active Substance: NICERGOLINE
     Indication: CARDIOVASCULAR INSUFFICIENCY
     Route: 048
  9. NICERGOLINE [Concomitant]
     Active Substance: NICERGOLINE
     Indication: NERVOUS SYSTEM DISORDER
     Route: 048
  10. AMIODARONE [Suspect]
     Active Substance: AMIODARONE
     Indication: CARDIOVERSION
     Route: 048
  11. BUTYLPHTHALIDE [Suspect]
     Active Substance: BUTYLPHTHALIDE
     Indication: NERVOUS SYSTEM DISORDER
     Route: 048
  12. RABEPRAZOLE SODIUM. [Suspect]
     Active Substance: RABEPRAZOLE SODIUM
     Indication: STRESS ULCER
     Route: 048
  13. SALVIA MILTIORRHIZA [Concomitant]
     Active Substance: HERBALS
  14. PROBUCOL [Concomitant]
     Active Substance: PROBUCOL
     Indication: ARTERIOSCLEROSIS
     Route: 048
  15. SOTALOL HYDROCHLORIDE. [Concomitant]
     Active Substance: SOTALOL HYDROCHLORIDE
     Indication: ARRHYTHMIA
     Route: 048
  16. GLUTATHIONE [Concomitant]
     Active Substance: GLUTATHIONE
     Indication: LIVER DISORDER
     Dosage: 2.4 G,ONCE
     Route: 041
  17. AMIODARONE [Suspect]
     Active Substance: AMIODARONE
     Indication: CARDIOVERSION
     Route: 041
  18. AMIODARONE [Suspect]
     Active Substance: AMIODARONE
     Indication: CARDIOVERSION
     Route: 041
  19. AMIODARONE [Suspect]
     Active Substance: AMIODARONE
     Indication: CARDIOVERSION
     Route: 048
  20. PIPERACILLIN SODIUM AND TAZOBACTUM SODIUM [Suspect]
     Active Substance: PIPERACILLIN SODIUM\TAZOBACTAM SODIUM
     Indication: PRODUCTIVE COUGH
     Route: 041
  21. ASPIRIN. [Concomitant]
     Active Substance: ASPIRIN
     Route: 048
  22. ARGATROBAN. [Concomitant]
     Active Substance: ARGATROBAN
     Indication: ANTIPLATELET THERAPY
     Route: 048
  23. BUMETANIDE. [Concomitant]
     Active Substance: BUMETANIDE
     Indication: POLYURIA
     Route: 042
  24. IDEBENONE [Concomitant]
     Active Substance: IDEBENONE
     Indication: CARDIOVASCULAR INSUFFICIENCY
     Route: 048
  25. IDEBENONE [Concomitant]
     Active Substance: IDEBENONE
     Indication: NERVOUS SYSTEM DISORDER
     Route: 048
  26. TRIMETAZIDINE DIHYDROCHLORIDE [Concomitant]
     Active Substance: TRIMETAZIDINE DIHYDROCHLORIDE
     Indication: NERVOUS SYSTEM DISORDER
     Route: 048
  27. AMBROXOL HYDROCHLORIDE [Concomitant]
     Active Substance: AMBROXOL HYDROCHLORIDE
     Indication: PRODUCTIVE COUGH
     Dosage: 30 MG, ONCE
     Route: 041
  28. CEFDINIR. [Concomitant]
     Active Substance: CEFDINIR
     Indication: PRODUCT USED FOR UNKNOWN INDICATION
     Dosage: 0.1 G, ONCE
     Route: 048
  29. AMIODARONE [Suspect]
     Active Substance: AMIODARONE
     Indication: CARDIOVERSION
     Route: 041
  30. AMIODARONE [Suspect]
     Active Substance: AMIODARONE
     Indication: CARDIOVERSION
     Route: 048
  31. PIPERACILLIN SODIUM AND TAZOBACTUM SODIUM [Suspect]
     Active Substance: PIPERACILLIN SODIUM\TAZOBACTAM SODIUM
     Indication: RENAL IMPAIRMENT
     Route: 041
  32. PIPERACILLIN SODIUM AND TAZOBACTUM SODIUM [Suspect]
     Active Substance: PIPERACILLIN SODIUM\TAZOBACTAM SODIUM
     Indication: LUNG INFECTION
     Route: 041
  33. EZETIMIBE. [Concomitant]
     Active Substance: EZETIMIBE
     Indication: LIPIDS ABNORMAL
     Route: 048
  34. TRIMETAZIDINE DIHYDROCHLORIDE [Concomitant]
     Active Substance: TRIMETAZIDINE DIHYDROCHLORIDE
     Indication: CARDIOVASCULAR INSUFFICIENCY
     Route: 048
  35. COMPOUND GLYCYRRHIZIN [Concomitant]
     Indication: LIVER DISORDER
     Dosage: 40 ML, ONCE
     Route: 041
  36. AMBROXOL HYDROCHLORIDE [Concomitant]
     Active Substance: AMBROXOL HYDROCHLORIDE
     Indication: LUNG INFECTION
     Dosage: 30 MG, ONCE
     Route: 041
  37. ROSUVASTATIN CALCIUM. [Suspect]
     Active Substance: ROSUVASTATIN CALCIUM
     Indication: LIPIDS ABNORMAL
     Route: 048
  38. ROSUVASTATIN CALCIUM. [Suspect]
     Active Substance: ROSUVASTATIN CALCIUM
     Indication: ARTERIOSCLEROSIS
     Route: 048
  39. RABEPRAZOLE SODIUM. [Suspect]
     Active Substance: RABEPRAZOLE SODIUM
     Indication: STRESS ULCER
     Route: 041
  40. TRIMETAZIDINE [Concomitant]
     Active Substance: TRIMETAZIDINE
  41. ALTEPLASE. [Concomitant]
     Active Substance: ALTEPLASE
     Indication: THROMBOLYSIS
     Route: 042
  42. HEPARIN SODIUM. [Suspect]
     Active Substance: HEPARIN SODIUM
     Indication: ANTICOAGULANT THERAPY
     Route: 058
  43. EZETIMIBE. [Concomitant]
     Active Substance: EZETIMIBE
     Indication: ARTERIOSCLEROSIS
     Route: 048
  44. OXIRACETAM [Concomitant]
     Active Substance: OXIRACETAM
     Indication: CARDIOVASCULAR INSUFFICIENCY
     Route: 048
  45. KALLIDINOGENASE [Concomitant]
     Active Substance: KALLIDINOGENASE
     Indication: NERVOUS SYSTEM DISORDER
     Dosage: 0.15 PNAU,ONCE
     Route: 041
  46. AMBROXOL HYDROCHLORIDE [Concomitant]
     Active Substance: AMBROXOL HYDROCHLORIDE
     Indication: INFECTION
     Dosage: 30 MG, ONCE
     Route: 041
  47. AMIODARONE [Suspect]
     Active Substance: AMIODARONE
     Indication: CARDIOVERSION
     Route: 048
  48. PIPERACILLIN SODIUM AND TAZOBACTUM SODIUM [Suspect]
     Active Substance: PIPERACILLIN SODIUM\TAZOBACTAM SODIUM
     Indication: LUNG INFECTION
     Route: 041
  49. PIPERACILLIN SODIUM AND TAZOBACTUM SODIUM [Suspect]
     Active Substance: PIPERACILLIN SODIUM\TAZOBACTAM SODIUM
     Indication: INFECTION
     Route: 041
  50. RABEPRAZOLE SODIUM. [Suspect]
     Active Substance: RABEPRAZOLE SODIUM
     Indication: GASTROINTESTINAL DISORDER
     Route: 048
  51. ALTEPLASE. [Concomitant]
     Active Substance: ALTEPLASE
     Indication: THROMBOLYSIS
     Route: 041
  52. WARFARIN SODIUM. [Suspect]
     Active Substance: WARFARIN SODIUM
     Indication: ANTICOAGULANT THERAPY
     Route: 048
  53. TEPRENONE [Concomitant]
     Active Substance: TEPRENONE
     Indication: GASTROINTESTINAL DISORDER
     Route: 048
  54. MECOBALAMIN [Concomitant]
     Active Substance: METHYLCOBALAMIN
     Indication: CARDIOVASCULAR INSUFFICIENCY
     Route: 042
  55. MECOBALAMIN [Concomitant]
     Active Substance: METHYLCOBALAMIN
     Indication: NERVOUS SYSTEM DISORDER
     Route: 042
  56. AMIODARONE [Suspect]
     Active Substance: AMIODARONE
     Indication: CARDIOVERSION
     Route: 048
  57. BUTYLPHTHALIDE [Suspect]
     Active Substance: BUTYLPHTHALIDE
     Indication: CARDIOVASCULAR INSUFFICIENCY
     Route: 048
  58. OXIRACETAM [Concomitant]
     Active Substance: OXIRACETAM
     Indication: NERVOUS SYSTEM DISORDER
     Route: 048
  59. AMIODARONE [Suspect]
     Active Substance: AMIODARONE
     Indication: CARDIOVERSION
     Route: 041
  60. RABEPRAZOLE SODIUM. [Suspect]
     Active Substance: RABEPRAZOLE SODIUM
     Indication: GASTROINTESTINAL DISORDER
     Route: 041
  61. KALLIDINOGENASE [Concomitant]
     Active Substance: KALLIDINOGENASE
     Indication: CARDIOVASCULAR INSUFFICIENCY
     Dosage: 0.15 PNAU,ONCE
     Route: 041
  62. POTASSIUM CHLORIDE. [Concomitant]
     Active Substance: POTASSIUM CHLORIDE
     Indication: ELECTROLYTE SUBSTITUTION THERAPY
     Dosage: 1.5 G,ONCE
     Route: 048

REACTIONS (2)
  - Drug-induced liver injury [Recovered/Resolved]
  - Renal impairment [Recovered/Resolved]
